FAERS Safety Report 9295084 (Version 1)
Quarter: 2013Q2

REPORT INFORMATION
  Report Type: Spontaneous
  Country: IT (occurrence: IT)
  Receive Date: 20130517
  Receipt Date: 20130517
  Transmission Date: 20140414
  Serious: Yes (Hospitalization)
  Sender: FDA-Public Use
  Company Number: IT-AMGEN-ITASP2013034089

PATIENT
  Age: 41 Year
  Sex: Female

DRUGS (2)
  1. NEULASTA [Suspect]
     Indication: LEUKOPENIA
     Dosage: 6 ML, TOTAL
     Route: 058
     Dates: end: 20130501
  2. CHEMOTHERAPEUTICS [Concomitant]
     Dosage: UNK

REACTIONS (2)
  - Hypotension [Recovered/Resolved]
  - Presyncope [Recovered/Resolved]
